FAERS Safety Report 5489774-9 (Version None)
Quarter: 2007Q4

REPORT INFORMATION
  Report Type: 
  Country: None (occurrence: None)
  Receive Date: 20071018
  Receipt Date: 20071008
  Transmission Date: 20080405
  Serious: Yes (Disabling)
  Sender: FDA-Public Use
  Company Number: FR-PFIZER INC-2007085962

PATIENT
  Sex: Male

DRUGS (5)
  1. AMLOR [Suspect]
     Indication: MYOCARDIAL INFARCTION
     Route: 048
  2. TAHOR [Suspect]
     Indication: MYOCARDIAL INFARCTION
     Route: 048
  3. RIVOTRIL [Suspect]
     Indication: PAIN
     Dosage: DAILY DOSE:10DROP
  4. ASPIRIN [Suspect]
     Indication: MYOCARDIAL INFARCTION
     Route: 048
  5. ACEBUTOLOL [Suspect]
     Indication: MYOCARDIAL INFARCTION
     Dosage: DAILY DOSE:200MG-FREQ:DAILY
     Route: 048

REACTIONS (1)
  - TENDON RUPTURE [None]
